FAERS Safety Report 9732478 (Version 1)
Quarter: 2013Q4

REPORT INFORMATION
  Report Type: Spontaneous
  Country: US (occurrence: US)
  Receive Date: 20131205
  Receipt Date: 20131205
  Transmission Date: 20140711
  Serious: No
  Sender: FDA-Public Use
  Company Number: US-PFIZER INC-2013347727

PATIENT
  Sex: Male

DRUGS (2)
  1. XANAX [Suspect]
     Indication: PANIC ATTACK
     Dosage: 0.25 MG, TWO TO THREE TIMES A DAY
     Dates: start: 201306, end: 201306
  2. XANAX [Suspect]
     Dosage: 0.25 MG, DAILY (TWO TO THREE TIMES A DAY)
     Dates: start: 201306, end: 20130705

REACTIONS (4)
  - Intentional drug misuse [Unknown]
  - Drug withdrawal syndrome [Recovering/Resolving]
  - Headache [Not Recovered/Not Resolved]
  - Dissociation [Not Recovered/Not Resolved]
